FAERS Safety Report 7106513-6 (Version None)
Quarter: 2010Q4

REPORT INFORMATION
  Report Type: 
  Country: None (occurrence: None)
  Receive Date: 20101116
  Receipt Date: 20101014
  Transmission Date: 20110411
  Serious: Yes (Other)
  Sender: FDA-Public Use
  Company Number: GR-ELI_LILLY_AND_COMPANY-GR201009006644

PATIENT
  Sex: Male
  Weight: 95.8 kg

DRUGS (6)
  1. PEMETREXED [Suspect]
     Indication: NON-SMALL CELL LUNG CANCER
     Dosage: 1070 MG, UNK
     Dates: start: 20100706
  2. CISPLATIN [Suspect]
     Indication: NON-SMALL CELL LUNG CANCER
     Dosage: 160 MG, UNK
     Dates: start: 20100706
  3. LEXOTANIL [Concomitant]
     Dates: start: 20100710
  4. EFFEXOR XR [Concomitant]
     Dates: start: 20100710
  5. FOLIC ACID [Concomitant]
     Dosage: UNK, DAILY (1/D)
     Dates: start: 20100629
  6. VITAMIN B-12 [Concomitant]
     Route: 030
     Dates: start: 20100629, end: 20100629

REACTIONS (1)
  - HYPERTENSION [None]
